FAERS Safety Report 19689462 (Version 1)
Quarter: 2021Q3

REPORT INFORMATION
  Report Type: Spontaneous
  Country: US (occurrence: US)
  Receive Date: 20210812
  Receipt Date: 20210812
  Transmission Date: 20211014
  Serious: Yes (Other)
  Sender: FDA-Public Use
  Company Number: US-CELGENEUS-USA-20210802073

PATIENT

DRUGS (3)
  1. ABRAXANE [Suspect]
     Active Substance: PACLITAXEL
     Indication: NEOPLASM
     Route: 041
  2. GEMCITABINE. [Suspect]
     Active Substance: GEMCITABINE
     Indication: NEOPLASM
     Route: 041
  3. CERITINIB [Suspect]
     Active Substance: CERITINIB
     Indication: NEOPLASM
     Dosage: 60 MILLIGRAM/SQ. METER
     Route: 041

REACTIONS (1)
  - Neutropenia [Unknown]
